FAERS Safety Report 16576550 (Version 1)
Quarter: 2019Q3

REPORT INFORMATION
  Report Type: Other
  Country: FR (occurrence: FR)
  Receive Date: 20190716
  Receipt Date: 20190716
  Transmission Date: 20191004
  Serious: Yes (Hospitalization, Other)
  Sender: FDA-Public Use
  Company Number: FR-ASTELLAS-2019US028396

PATIENT
  Age: 72 Year
  Sex: Female
  Weight: 48 kg

DRUGS (3)
  1. PROGRAF [Suspect]
     Active Substance: TACROLIMUS\TACROLIMUS ANHYDROUS
     Indication: HEART TRANSPLANT
     Route: 048
     Dates: start: 20190530, end: 20190611
  2. ERYTHROCINE                        /00020901/ [Interacting]
     Active Substance: ERYTHROMYCIN
     Indication: IMPAIRED GASTRIC EMPTYING
     Route: 042
     Dates: start: 20190606, end: 20190611
  3. CERTICAN [Interacting]
     Active Substance: EVEROLIMUS
     Indication: HEART TRANSPLANT
     Route: 048
     Dates: start: 20190603, end: 20190611

REACTIONS (3)
  - Immunosuppressant drug level increased [Recovering/Resolving]
  - Drug interaction [Unknown]
  - Renal failure [Not Recovered/Not Resolved]

NARRATIVE: CASE EVENT DATE: 20190611
